FAERS Safety Report 6126316-9 (Version None)
Quarter: 2009Q1

REPORT INFORMATION
  Report Type: 
  Country: None (occurrence: None)
  Receive Date: 20090320
  Receipt Date: 20090227
  Transmission Date: 20090719
  Serious: Yes (Hospitalization)
  Sender: FDA-Public Use
  Company Number: BF-MERCK-0903USA00780

PATIENT
  Age: 20 Year
  Sex: Male
  Weight: 60 kg

DRUGS (3)
  1. STROMECTOL [Suspect]
     Indication: ONCHOCERCIASIS
     Route: 048
     Dates: start: 20090212, end: 20090212
  2. ALBENDAZOLE [Suspect]
     Indication: FILARIASIS LYMPHATIC
     Route: 048
     Dates: start: 20090212, end: 20090212
  3. PHENOBARBITAL [Concomitant]
     Route: 048
     Dates: end: 20090228

REACTIONS (16)
  - ARTHRALGIA [None]
  - CONJUNCTIVAL HYPERAEMIA [None]
  - DYSPHAGIA [None]
  - EYE PAIN [None]
  - GENERALISED ERYTHEMA [None]
  - GENITAL ULCERATION [None]
  - HEADACHE [None]
  - HYPERTHERMIA [None]
  - LYMPHADENOPATHY [None]
  - MOUTH ULCERATION [None]
  - ODYNOPHAGIA [None]
  - PRURITUS GENERALISED [None]
  - PYREXIA [None]
  - SKIN EXFOLIATION [None]
  - SKIN LESION [None]
  - STEVENS-JOHNSON SYNDROME [None]
